FAERS Safety Report 7629789-5 (Version None)
Quarter: 2011Q3

REPORT INFORMATION
  Report Type: 
  Country: None (occurrence: None)
  Receive Date: 20110722
  Receipt Date: 20110718
  Transmission Date: 20111222
  Serious: Yes (Life-Threatening, Hospitalization)
  Sender: FDA-Public Use
  Company Number: FR-PFIZER INC-2011161624

PATIENT
  Age: 52 Year
  Sex: Female

DRUGS (3)
  1. NOCTAMID [Concomitant]
  2. IBUPROFEN (ADVIL) [Suspect]
     Indication: FEBRILE CONVULSION
     Dosage: UNK
     Route: 048
     Dates: start: 20110406, end: 20110407
  3. PARACETAMOL [Concomitant]
     Dosage: UNK
     Dates: start: 20110405

REACTIONS (2)
  - CONDITION AGGRAVATED [None]
  - PYELONEPHRITIS ACUTE [None]
